FAERS Safety Report 6143812-9 (Version None)
Quarter: 2009Q2

REPORT INFORMATION
  Report Type: 
  Country: None (occurrence: None)
  Receive Date: 20090403
  Receipt Date: 20090402
  Transmission Date: 20091009
  Serious: Yes (Death)
  Sender: FDA-Public Use
  Company Number: PHHY2009NZ09854

PATIENT
  Sex: Female

DRUGS (5)
  1. CLOZARIL [Suspect]
     Indication: SCHIZOPHRENIA
     Dosage: 300 MG NOCTE
     Route: 048
     Dates: start: 20041201
  2. EPILIM [Concomitant]
     Dosage: 500 MG, BID
     Dates: end: 20090121
  3. PIPORTIL [Concomitant]
     Dosage: 62.5 MG, UNK
     Dates: end: 20090121
  4. CLONAZEPAM [Concomitant]
     Dosage: 5 MG, UNK
     Dates: end: 20090121
  5. NORTRIPTYLINE HCL [Concomitant]
     Dosage: 50 MG, BID
     Dates: end: 20090121

REACTIONS (1)
  - DEATH [None]
